FAERS Safety Report 8758843 (Version 2)
Quarter: 2012Q4

REPORT INFORMATION
  Report Type: 
  Country: MX (occurrence: MX)
  Receive Date: 20120829
  Receipt Date: 20120829
  Transmission Date: 20130627
  Serious: Yes (Other)
  Sender: FDA-Public Use
  Company Number: PHHY2012MX063680

PATIENT
  Age: 60 Year
  Sex: Female

DRUGS (3)
  1. ACLASTA [Suspect]
     Indication: OSTEOPOROSIS
     Dosage: 5 mg, once a year
     Route: 042
     Dates: start: 20120716
  2. CO-DIOVAN [Suspect]
     Dosage: once by day
  3. ZELOCEC [Concomitant]
     Dosage: UNK UKN, UNK

REACTIONS (10)
  - Iris disorder [Unknown]
  - Uveitis [Unknown]
  - Photophobia [Not Recovered/Not Resolved]
  - Ocular hyperaemia [Recovering/Resolving]
  - Vision blurred [Unknown]
  - Eye pain [Unknown]
  - Conjunctival hyperaemia [Unknown]
  - Lacrimation increased [Unknown]
  - Eye inflammation [Unknown]
  - Pain [Recovered/Resolved]
